FAERS Safety Report 8434744-1 (Version None)
Quarter: 2012Q2

REPORT INFORMATION
  Report Type: 
  Country: None (occurrence: None)
  Receive Date: 20120323
  Receipt Date: 20110630
  Transmission Date: 20120825
  Serious: Yes (Other)
  Sender: FDA-Public Use
  Company Number: 163-21880-11070543

PATIENT
  Age: 65 Year
  Sex: Male

DRUGS (6)
  1. OPTIVE (OPTIVE) (UNKNOWN) [Concomitant]
  2. REVLIMID [Suspect]
     Indication: MANTLE CELL LYMPHOMA
     Dosage: 25 MG, 1 IN 1 D, PO   15 MG, DAILY X 21 DAYS, PO
     Route: 048
     Dates: start: 20100301
  3. REVLIMID [Suspect]
     Indication: MANTLE CELL LYMPHOMA
     Dosage: 25 MG, 1 IN 1 D, PO   15 MG, DAILY X 21 DAYS, PO
     Route: 048
     Dates: start: 20090730
  4. VALACYCLOVIR HCL (UNKNOWN) [Concomitant]
  5. DULCOLAX [Concomitant]
  6. CLOTRIMAZOLE [Concomitant]

REACTIONS (1)
  - DEEP VEIN THROMBOSIS [None]
